FAERS Safety Report 9167787 (Version 3)
Quarter: 2013Q2

REPORT INFORMATION
  Report Type: Spontaneous
  Country: US (occurrence: US)
  Receive Date: 20130318
  Receipt Date: 20130503
  Transmission Date: 20140414
  Serious: Yes (Other)
  Sender: FDA-Public Use
  Company Number: US-PFIZER INC-2013087042

PATIENT
  Age: 83 Year
  Sex: Male
  Weight: 81.63 kg

DRUGS (9)
  1. CELEBREX [Suspect]
     Indication: ARTHRALGIA
     Dosage: 200 MG, ONCE A DAY
     Route: 048
     Dates: start: 20130212, end: 20130308
  2. CELEBREX [Suspect]
     Indication: INTERVERTEBRAL DISC DEGENERATION
  3. CELEBREX [Suspect]
     Indication: OSTEOARTHRITIS
  4. ALEVE [Suspect]
     Indication: OSTEOARTHRITIS
     Dosage: UNK
     Dates: end: 20130308
  5. SIMVASTATIN [Concomitant]
     Indication: BLOOD CHOLESTEROL INCREASED
     Dosage: 40 MG
  6. METOPROLOL [Concomitant]
     Dosage: 25 MG (HALF TABLET OF 50MG), TWICE DAILY
     Route: 048
  7. FINASTERIDE [Concomitant]
     Dosage: 5 MG, ONCE DAILY
     Route: 048
  8. CLOPIDOGREL SULFATE [Concomitant]
     Dosage: 75 MG, ONCE DAILY
  9. HYDROCHLOROTHIAZIDE [Concomitant]
     Dosage: 50 MG

REACTIONS (2)
  - Gastrointestinal haemorrhage [Recovered/Resolved]
  - Gastrointestinal disorder [Unknown]
